FAERS Safety Report 10388621 (Version 2)
Quarter: 2014Q3

REPORT INFORMATION
  Report Type: Report from Study
  Country: JP (occurrence: JP)
  Receive Date: 20140815
  Receipt Date: 20140918
  Transmission Date: 20150326
  Serious: Yes (Other)
  Sender: FDA-Public Use
  Company Number: JP-009507513-1408JPN009284

PATIENT
  Age: 67 Year
  Sex: Male

DRUGS (16)
  1. DIAZOXIDE CAPSULES 25 MG ^MSD^ [Suspect]
     Active Substance: DIAZOXIDE
     Indication: HYPOGLYCAEMIA
     Dosage: 75 MG, QD
     Route: 048
     Dates: start: 20140204, end: 20140204
  2. DIAZOXIDE CAPSULES 25 MG ^MSD^ [Suspect]
     Active Substance: DIAZOXIDE
     Dosage: 150 MG, QD
     Route: 048
     Dates: start: 20140205, end: 20140205
  3. GASTER [Concomitant]
     Active Substance: FAMOTIDINE
     Indication: HYPOGLYCAEMIA
     Dosage: 20 MG, QD (DIVIDED DOSE FREQUENCY UNKNOWN)
     Route: 048
  4. DIAZOXIDE CAPSULES 25 MG ^MSD^ [Suspect]
     Active Substance: DIAZOXIDE
     Dosage: 225 MG, QD
     Route: 048
     Dates: start: 20140206, end: 20140211
  5. DIAZOXIDE CAPSULES 25 MG ^MSD^ [Suspect]
     Active Substance: DIAZOXIDE
     Dosage: 225 MG, BID
     Route: 048
     Dates: start: 20140212, end: 20140213
  6. DEXTROSE. [Concomitant]
     Active Substance: DEXTROSE
     Indication: HYPOGLYCAEMIA
     Dosage: 10-20 G IRREGULAR DOSE
     Route: 048
     Dates: end: 20140203
  7. ALDACTONE [Concomitant]
     Active Substance: SPIRONOLACTONE
     Indication: HYPOGLYCAEMIA
     Dosage: 25 MG, QD (DIVIDED DOSE FREQUENCY UNKNOWN)
     Route: 048
  8. MUCOSTA [Concomitant]
     Active Substance: REBAMIPIDE
     Indication: HYPOGLYCAEMIA
     Dosage: 300 MG, QD (DIVIDED DOSE FREQUENCY UNKNOWN)
     Route: 048
  9. MUCOSTA [Concomitant]
     Active Substance: REBAMIPIDE
     Indication: GASTRIC ULCER
  10. GLUCOBAY [Concomitant]
     Active Substance: ACARBOSE
     Indication: HYPERGLYCAEMIA
     Dosage: 100 MG, QD (DIVIDED DOSE FREQUENCY UNKNOWN)
     Route: 048
     Dates: start: 20140210, end: 20140215
  11. DIAZOXIDE CAPSULES 25 MG ^MSD^ [Suspect]
     Active Substance: DIAZOXIDE
     Dosage: 450 MG, QD
     Route: 048
     Dates: start: 20140214, end: 20140215
  12. BLOPRESS [Concomitant]
     Active Substance: CANDESARTAN CILEXETIL
     Indication: HYPERTENSION
  13. ALDACTONE [Concomitant]
     Active Substance: SPIRONOLACTONE
     Indication: HYPERTENSION
  14. DEXTROSE. [Concomitant]
     Active Substance: DEXTROSE
     Indication: HYPOGLYCAEMIA
     Dosage: 10-20 G IRREGULAR DOSE
     Route: 042
     Dates: end: 20140203
  15. GASTER [Concomitant]
     Active Substance: FAMOTIDINE
     Indication: GASTRIC ULCER
  16. BLOPRESS [Concomitant]
     Active Substance: CANDESARTAN CILEXETIL
     Indication: HYPOGLYCAEMIA
     Dosage: 8 MG, QD (DIVIDED DOSE FREQUENCY UNKNOWN)
     Route: 048

REACTIONS (1)
  - Renal disorder [Recovering/Resolving]

NARRATIVE: CASE EVENT DATE: 20140216
